FAERS Safety Report 24201077 (Version 2)
Quarter: 2024Q3

REPORT INFORMATION
  Report Type: Spontaneous
  Country: AR (occurrence: AR)
  Receive Date: 20240812
  Receipt Date: 20240911
  Transmission Date: 20241017
  Serious: No
  Sender: NOVARTIS
  Company Number: AR-002147023-NVSC2024AR162737

PATIENT
  Age: 34 Year
  Sex: Female

DRUGS (2)
  1. SECUKINUMAB [Suspect]
     Active Substance: SECUKINUMAB
     Indication: Psoriasis
     Dosage: 300 MG, QMO
     Route: 058
     Dates: start: 202306
  2. PYRIDOSTIGMINE [Concomitant]
     Active Substance: PYRIDOSTIGMINE
     Indication: Product used for unknown indication
     Dosage: UNK
     Route: 065

REACTIONS (1)
  - Post inflammatory pigmentation change [Unknown]
